FAERS Safety Report 10061287 (Version 2)
Quarter: 2014Q2

REPORT INFORMATION
  Report Type: Spontaneous
  Country: JP (occurrence: JP)
  Receive Date: 20140407
  Receipt Date: 20140423
  Transmission Date: 20141212
  Serious: Yes (Other)
  Sender: FDA-Public Use
  Company Number: JP-ROCHE-1374343

PATIENT
  Age: 2 Year
  Sex: Male
  Weight: 11 kg

DRUGS (2)
  1. TAMIFLU [Suspect]
     Indication: INFLUENZA
     Route: 048
     Dates: start: 20140324, end: 20140325
  2. ANHIBA [Concomitant]
     Indication: INFLUENZA
     Dosage: SINGLE DOSE ADMINISTRATION
     Route: 054
     Dates: start: 20140324, end: 20140325

REACTIONS (2)
  - Abnormal behaviour [Recovered/Resolved]
  - Restlessness [Recovered/Resolved]
